FAERS Safety Report 4743722-5 (Version None)
Quarter: 2005Q3

REPORT INFORMATION
  Report Type: 
  Country: None (occurrence: None)
  Receive Date: 20050812
  Receipt Date: 20050808
  Transmission Date: 20060218
  Serious: Yes (Hospitalization)
  Sender: FDA-Public Use
  Company Number: US-GLAXOSMITHKLINE-A0569252A

PATIENT
  Age: 67 Year
  Sex: Female

DRUGS (23)
  1. REQUIP [Suspect]
     Indication: RESTLESS LEGS SYNDROME
     Route: 048
  2. KLOR-CON [Concomitant]
  3. GLUCOSE [Concomitant]
  4. CALCIUM GLUCONATE [Concomitant]
  5. ASPIRIN [Concomitant]
  6. LASIX [Concomitant]
  7. EFFEXOR [Concomitant]
  8. VITAMINS [Concomitant]
  9. LESCOL [Concomitant]
  10. FLEXERIL [Concomitant]
  11. LISINOPRIL [Concomitant]
  12. ZANTAC [Concomitant]
  13. SPIRONOLACTONE [Concomitant]
  14. OXYCODONE [Concomitant]
  15. DETROL LA [Concomitant]
  16. ALBUTEROL [Concomitant]
  17. BENZONATATE [Concomitant]
  18. NIFEDIPINE [Concomitant]
  19. CHOLESTYRAMINE [Concomitant]
  20. ADVAIR DISKUS 100/50 [Concomitant]
  21. HUMALOG [Concomitant]
  22. LOMOTIL [Concomitant]
  23. ZOFRAN [Concomitant]

REACTIONS (4)
  - DRUG INEFFECTIVE [None]
  - GASTROINTESTINAL HAEMORRHAGE [None]
  - PNEUMONIA [None]
  - TRANSIENT ISCHAEMIC ATTACK [None]
